FAERS Safety Report 8058588-8 (Version None)
Quarter: 2012Q1

REPORT INFORMATION
  Report Type: 
  Country: None (occurrence: None)
  Receive Date: 20120120
  Receipt Date: 20120106
  Transmission Date: 20120608
  Serious: Yes (Other)
  Sender: FDA-Public Use
  Company Number: US-MYLANLABS-2012S1000697

PATIENT
  Age: 46 Year
  Sex: Male

DRUGS (3)
  1. IBUPROFEN [Suspect]
     Indication: PYREXIA
     Route: 065
  2. IBUPROFEN [Suspect]
     Indication: DECREASED APPETITE
     Route: 065
  3. IBUPROFEN [Suspect]
     Indication: ABDOMINAL PAIN
     Route: 065

REACTIONS (4)
  - MELAENA [None]
  - EROSIVE OESOPHAGITIS [None]
  - GASTRITIS [None]
  - PORTAL VEIN PHLEBITIS [None]
